FAERS Safety Report 5418664-2 (Version None)
Quarter: 2007Q3

REPORT INFORMATION
  Report Type: 
  Country: None (occurrence: None)
  Receive Date: 20070817
  Receipt Date: 20070807
  Transmission Date: 20080115
  Serious: Yes (Life-Threatening)
  Sender: FDA-Public Use
  Company Number: FR-GILEAD-2007-0012658

PATIENT
  Sex: Male
  Weight: 60 kg

DRUGS (13)
  1. TRUVADA [Suspect]
     Indication: HIV INFECTION
     Route: 048
     Dates: start: 20070426, end: 20070522
  2. BACTRIM [Suspect]
     Indication: PROPHYLAXIS
     Route: 048
     Dates: start: 20070426, end: 20070705
  3. KALETRA [Concomitant]
     Indication: HIV INFECTION
     Route: 048
     Dates: start: 20070605
  4. KALETRA [Concomitant]
     Route: 048
     Dates: start: 20070426, end: 20070522
  5. COMBIVIR [Concomitant]
     Indication: HIV INFECTION
     Dates: start: 20070605, end: 20070625
  6. EPIVIR [Concomitant]
     Indication: HIV INFECTION
     Dates: start: 20070625
  7. RETROVIR [Concomitant]
     Indication: HIV INFECTION
     Dates: start: 20070625, end: 20070718
  8. VIDEX [Concomitant]
     Indication: HIV INFECTION
     Dates: start: 20070718
  9. BARACLUDE [Concomitant]
     Indication: HEPATITIS B
     Dates: start: 20070730
  10. TRIFLUCAN [Concomitant]
  11. AZADOSE [Concomitant]
  12. TRANSIPEG [Concomitant]
  13. KETODERM [Concomitant]

REACTIONS (2)
  - BLOOD CREATININE INCREASED [None]
  - RENAL TUBULAR DISORDER [None]
